FAERS Safety Report 19482999 (Version 1)
Quarter: 2021Q3

REPORT INFORMATION
  Report Type: Spontaneous
  Country: US (occurrence: US)
  Receive Date: 20210701
  Receipt Date: 20210701
  Transmission Date: 20211014
  Serious: Yes (Hospitalization)
  Sender: FDA-Public Use
  Company Number: US-MYLANLABS-2021M1038513

PATIENT
  Age: 61 Year
  Sex: Female

DRUGS (6)
  1. WARFARIN [Suspect]
     Active Substance: WARFARIN
     Indication: ANTIPLATELET THERAPY
  2. ASPIRIN                            /00002701/ [Suspect]
     Active Substance: ASPIRIN
     Indication: ANTIPLATELET THERAPY
     Dosage: 81 MILLIGRAM, QD
     Route: 065
  3. BUPIVACAINE. [Concomitant]
     Active Substance: BUPIVACAINE
     Indication: INDUCTION OF ANAESTHESIA
     Dosage: 1.5 MILLILITER, TOTAL VOLUME OF...
     Route: 014
  4. TRIAMCINOLONE [Concomitant]
     Active Substance: TRIAMCINOLONE
     Indication: DRUG THERAPY
     Dosage: 1 MILLILITER, TOTAL VOLUME O..
     Route: 014
  5. LIDOCAINE. [Concomitant]
     Active Substance: LIDOCAINE
     Indication: INDUCTION OF ANAESTHESIA
     Dosage: 3 MILLILITER, THE SKIN AND...
     Route: 065
  6. WARFARIN [Suspect]
     Active Substance: WARFARIN
     Indication: ATRIAL FIBRILLATION
     Dosage: 5 MILLIGRAM, QD
     Route: 065

REACTIONS (4)
  - Urinary retention [Unknown]
  - Haematoma [Recovered/Resolved]
  - Sensory disturbance [Unknown]
  - Asthenia [Unknown]
